FAERS Safety Report 4785999-6 (Version None)
Quarter: 2005Q4

REPORT INFORMATION
  Report Type: 
  Country: None (occurrence: None)
  Receive Date: 20051003
  Receipt Date: 20050923
  Transmission Date: 20060501
  Serious: Yes (Other)
  Sender: FDA-Public Use
  Company Number: 200516773US

PATIENT
  Sex: Female
  Weight: 55.7 kg

DRUGS (2)
  1. AMARYL [Suspect]
     Indication: DIABETES MELLITUS NON-INSULIN-DEPENDENT
     Route: 048
     Dates: start: 20050901, end: 20050923
  2. CLONIDINE [Concomitant]
     Indication: HYPERTENSION
     Dosage: DOSE: NOT PROVIDED

REACTIONS (12)
  - ABDOMINAL PAIN UPPER [None]
  - ASTHENIA [None]
  - BLINDNESS [None]
  - BLOOD GLUCOSE INCREASED [None]
  - DIZZINESS [None]
  - INJURY [None]
  - LIMB INJURY [None]
  - NAUSEA [None]
  - NERVOUSNESS [None]
  - SYNCOPE [None]
  - VISION BLURRED [None]
  - VOMITING [None]
